FAERS Safety Report 8805019 (Version 1)
Quarter: 2012Q4

REPORT INFORMATION
  Report Type: Spontaneous
  Country: US (occurrence: None)
  Receive Date: 20120917
  Receipt Date: 20120917
  Transmission Date: 20130627
  Serious: Yes (Other)
  Sender: FDA-Public Use
  Company Number: AUR-APL-2012-03860

PATIENT
  Sex: Male

DRUGS (1)
  1. AMLODIPINE (AMLODIPINE) [Suspect]
     Indication: HYPERTENSION
     Dates: start: 201107, end: 201203

REACTIONS (7)
  - Pruritus [None]
  - Drug eruption [None]
  - Pain in extremity [None]
  - Onychoclasis [None]
  - Arthralgia [None]
  - Vitamin D decreased [None]
  - Blood pressure diastolic decreased [None]
